FAERS Safety Report 6263481-7 (Version None)
Quarter: 2009Q3

REPORT INFORMATION
  Report Type: 
  Country: None (occurrence: None)
  Receive Date: 20090710
  Receipt Date: 20090403
  Transmission Date: 20100115
  Serious: No
  Sender: FDA-Public Use
  Company Number: A0761075A

PATIENT
  Age: 38 Year
  Sex: Female

DRUGS (4)
  1. TYKERB [Suspect]
     Indication: BREAST CANCER
     Dosage: 1250MG PER DAY
     Route: 048
     Dates: start: 20081216
  2. AMBIEN [Concomitant]
  3. ZOFRAN [Concomitant]
  4. TESSALON [Concomitant]

REACTIONS (5)
  - DIARRHOEA [None]
  - DYSPNOEA [None]
  - HEART RATE INCREASED [None]
  - NAUSEA [None]
  - VOMITING [None]
